FAERS Safety Report 7298439-2 (Version None)
Quarter: 2011Q1

REPORT INFORMATION
  Report Type: 
  Country: None (occurrence: None)
  Receive Date: 20110204
  Receipt Date: 20110127
  Transmission Date: 20110831
  Serious: Yes (Death)
  Sender: FDA-Public Use
  Company Number: 022401

PATIENT
  Sex: Male
  Weight: 80 kg

DRUGS (8)
  1. MEDROL [Concomitant]
  2. CERTOLIZUMAB PEGOL (CERTOLIZUMAB PEGOL) [Suspect]
     Indication: RHEUMATOID ARTHRITIS
     Dosage: SEE IMAGE
     Route: 058
     Dates: start: 20051206, end: 20060523
  3. CERTOLIZUMAB PEGOL (CERTOLIZUMAB PEGOL) [Suspect]
     Indication: RHEUMATOID ARTHRITIS
     Dosage: SEE IMAGE
     Route: 058
     Dates: start: 20101019, end: 20101102
  4. CERTOLIZUMAB PEGOL (CERTOLIZUMAB PEGOL) [Suspect]
     Indication: RHEUMATOID ARTHRITIS
     Dosage: SEE IMAGE
     Route: 058
     Dates: start: 20060523, end: 20101006
  5. CALCIUM W/VITAMINS NOS [Concomitant]
  6. VIGANTOL /00318501/ [Concomitant]
  7. METHOTREXATE [Concomitant]
  8. FOLIC ACID [Concomitant]

REACTIONS (19)
  - BLOOD GLUCOSE INCREASED [None]
  - PLEURAL EFFUSION [None]
  - ISCHAEMIC STROKE [None]
  - PULMONARY CONGESTION [None]
  - PULMONARY OEDEMA [None]
  - HYPOTENSION [None]
  - THERAPEUTIC RESPONSE DECREASED [None]
  - RESPIRATORY RATE INCREASED [None]
  - BRADYPNOEA [None]
  - BRADYCARDIA [None]
  - BLOOD CHOLESTEROL INCREASED [None]
  - CARDIAC ARREST [None]
  - VIITH NERVE PARALYSIS [None]
  - ATRIAL FIBRILLATION [None]
  - TACHYCARDIA [None]
  - PLATELET COUNT DECREASED [None]
  - CAROTID ARTERY OCCLUSION [None]
  - MYDRIASIS [None]
  - BRAIN HERNIATION [None]
